FAERS Safety Report 23503434 (Version 2)
Quarter: 2024Q1

REPORT INFORMATION
  Report Type: Spontaneous
  Country: PT (occurrence: PT)
  Receive Date: 20240208
  Receipt Date: 20240216
  Transmission Date: 20240409
  Serious: Yes (Other)
  Sender: FDA-Public Use
  Company Number: PT-CELLTRION INC.-2024PT002872

PATIENT

DRUGS (5)
  1. ONTRUZANT [Suspect]
     Active Substance: TRASTUZUMAB-DTTB
     Indication: Oesophageal neoplasm
     Dosage: 840 MG EVERY 21 DAYS
     Route: 042
     Dates: start: 20230719
  2. ONTRUZANT [Suspect]
     Active Substance: TRASTUZUMAB-DTTB
     Dosage: 840 MG EVERY 21 DAYS
     Route: 042
     Dates: start: 20230719
  3. TRASTUZUMAB [Suspect]
     Active Substance: TRASTUZUMAB
     Indication: Oesophageal neoplasm
     Dosage: 840MG
     Route: 042
     Dates: start: 20230719
  4. TRASTUZUMAB [Suspect]
     Active Substance: TRASTUZUMAB
     Dosage: 840MG
     Route: 042
     Dates: start: 20230719
  5. CISPLATIN [Concomitant]
     Active Substance: CISPLATIN
     Route: 042

REACTIONS (4)
  - Back pain [Recovered/Resolved]
  - Neck pain [Recovered/Resolved]
  - Tremor [Recovered/Resolved]
  - Intentional product use issue [Unknown]

NARRATIVE: CASE EVENT DATE: 20230719
